FAERS Safety Report 15415047 (Version 1)
Quarter: 2018Q3

REPORT INFORMATION
  Report Type: Report from Study
  Country: US (occurrence: US)
  Receive Date: 20180921
  Receipt Date: 20180921
  Transmission Date: 20181010
  Serious: Yes (Hospitalization, Other)
  Sender: FDA-Public Use
  Company Number: US-SHIRE-US201835767

PATIENT
  Age: 47 Year
  Sex: Female

DRUGS (2)
  1. GATTEX [Suspect]
     Active Substance: TEDUGLUTIDE\WATER
     Dosage: UNK
     Route: 065
     Dates: start: 20180823
  2. GATTEX [Suspect]
     Active Substance: TEDUGLUTIDE\WATER
     Indication: SHORT-BOWEL SYNDROME
     Dosage: 1.02 MG, 1X/DAY:QD
     Route: 058
     Dates: start: 20180816

REACTIONS (3)
  - Hyponatraemia [Unknown]
  - Device related sepsis [Unknown]
  - Infection [Unknown]

NARRATIVE: CASE EVENT DATE: 20180911
